FAERS Safety Report 10711010 (Version 3)
Quarter: 2015Q1

REPORT INFORMATION
  Report Type: Spontaneous
  Country: US (occurrence: US)
  Receive Date: 20150114
  Receipt Date: 20150129
  Transmission Date: 20150721
  Serious: Yes (Hospitalization)
  Sender: FDA-Public Use
  Company Number: US-JNJFOC-20150102501

PATIENT
  Age: 78 Year
  Sex: Female
  Weight: 90.4 kg

DRUGS (2)
  1. XARELTO [Suspect]
     Active Substance: RIVAROXABAN
     Indication: THROMBOSIS PROPHYLAXIS
     Dosage: AT 6:00 AM IN THE MORNING FOR 35 DAYS
     Route: 048
     Dates: start: 20140721, end: 20140726
  2. XARELTO [Suspect]
     Active Substance: RIVAROXABAN
     Indication: HIP ARTHROPLASTY
     Dosage: AT 6:00 AM IN THE MORNING FOR 35 DAYS
     Route: 048
     Dates: start: 20140721, end: 20140726

REACTIONS (1)
  - Post procedural haematoma [Unknown]

NARRATIVE: CASE EVENT DATE: 20140726
